FAERS Safety Report 23541867 (Version 1)
Quarter: 2024Q1

REPORT INFORMATION
  Report Type: Report from Study
  Country: CA (occurrence: CA)
  Receive Date: 20240220
  Receipt Date: 20240220
  Transmission Date: 20240410
  Serious: Yes (Other)
  Sender: FDA-Public Use
  Company Number: CA-TAKEDA-2024TUS014795

PATIENT
  Sex: Female

DRUGS (2)
  1. HUMAN IMMUNOGLOBULIN G [Suspect]
     Active Substance: HUMAN IMMUNOGLOBULIN G
     Indication: Primary immunodeficiency syndrome
     Dosage: 8 GRAM, 1/WEEK
     Route: 058
     Dates: start: 20190628
  2. AMOXICILLIN [Concomitant]
     Active Substance: AMOXICILLIN
     Indication: Prophylaxis
     Dosage: 500 MILLIGRAM, QD
     Route: 065

REACTIONS (5)
  - Bronchiectasis [Unknown]
  - Injection site haemorrhage [Unknown]
  - Haematoma [Unknown]
  - Gastrooesophageal reflux disease [Unknown]
  - Rash pruritic [Unknown]
